FAERS Safety Report 24096244 (Version 1)
Quarter: 2024Q3

REPORT INFORMATION
  Report Type: Spontaneous
  Country: AU (occurrence: AU)
  Receive Date: 20240716
  Receipt Date: 20240716
  Transmission Date: 20241017
  Serious: Yes (Other)
  Sender: RANBAXY
  Company Number: AU-SUN PHARMACEUTICAL INDUSTRIES LTD-2024RR-456433

PATIENT
  Age: 71 Year
  Sex: Female

DRUGS (4)
  1. TERBINAFINE [Suspect]
     Active Substance: TERBINAFINE
     Indication: Onychomycosis
     Dosage: UNK
     Route: 048
  2. PREDNISOLONE [Suspect]
     Active Substance: PREDNISOLONE
     Indication: Lupus-like syndrome
     Dosage: 50 MILLIGRAM, DAILY
     Route: 048
  3. HYDROXYCHLOROQUINE [Suspect]
     Active Substance: HYDROXYCHLOROQUINE
     Indication: Lupus-like syndrome
     Dosage: 200 MILLIGRAM, BID
     Route: 065
  4. METHOTREXATE [Suspect]
     Active Substance: METHOTREXATE
     Indication: Lupus-like syndrome
     Dosage: 10 MILLIGRAM, WEEKLY
     Route: 065

REACTIONS (6)
  - Lupus-like syndrome [Unknown]
  - Drug ineffective [Unknown]
  - Drug intolerance [Unknown]
  - Nausea [Unknown]
  - Alopecia [Unknown]
  - Disease progression [Unknown]
